FAERS Safety Report 4653397-1 (Version None)
Quarter: 2005Q2

REPORT INFORMATION
  Report Type: 
  Country: None (occurrence: None)
  Receive Date: 20050503
  Receipt Date: 20050412
  Transmission Date: 20051028
  Serious: Yes (Other)
  Sender: FDA-Public Use
  Company Number: 200312783GDS

PATIENT
  Age: 56 Year
  Sex: Male
  Weight: 68 kg

DRUGS (6)
  1. LEVITRA [Suspect]
     Indication: ERECTILE DYSFUNCTION
     Dosage: 10 MG, TOTAL DAILY, ORAL; SEE IMAGE
     Route: 048
     Dates: start: 20030615
  2. LEVITRA [Suspect]
     Indication: ERECTILE DYSFUNCTION
     Dosage: 10 MG, TOTAL DAILY, ORAL; SEE IMAGE
     Route: 048
     Dates: start: 20030620
  3. METFORMIN HCL [Concomitant]
  4. GLIMEPIL [Concomitant]
  5. FLUOXETINE [Concomitant]
  6. LOSARTAN POTASSIUM [Concomitant]

REACTIONS (2)
  - CEREBRAL INFARCTION [None]
  - CEREBROVASCULAR ACCIDENT [None]
